FAERS Safety Report 7210315-X (Version None)
Quarter: 2011Q1

REPORT INFORMATION
  Report Type: 
  Country: None (occurrence: None)
  Receive Date: 20110103
  Receipt Date: 20110103
  Transmission Date: 20110831
  Serious: Yes (Hospitalization)
  Sender: FDA-Public Use
  Company Number: None

PATIENT

DRUGS (1)
  1. IBUPROFEN [Suspect]
     Indication: PAIN
     Dosage: 800 MG TID PO
     Route: 048
     Dates: start: 20100209, end: 20100921

REACTIONS (7)
  - DIVERTICULUM [None]
  - HAEMATOCHEZIA [None]
  - GASTRITIS EROSIVE [None]
  - ACQUIRED OESOPHAGEAL WEB [None]
  - GASTRIC HAEMORRHAGE [None]
  - POLYP [None]
  - HIATUS HERNIA [None]
